FAERS Safety Report 13462433 (Version 2)
Quarter: 2017Q2

REPORT INFORMATION
  Report Type: Spontaneous
  Country: US (occurrence: US)
  Receive Date: 20170420
  Receipt Date: 20170426
  Transmission Date: 20170830
  Serious: Yes (Other)
  Sender: FDA-Public Use
  Company Number: US-BAYER-2017-074812

PATIENT
  Age: 28 Year
  Sex: Female

DRUGS (1)
  1. MIRENA [Suspect]
     Active Substance: LEVONORGESTREL
     Indication: CONTRACEPTION
     Dosage: 20 MCG/24HR, CONT
     Route: 015
     Dates: start: 20170318

REACTIONS (4)
  - Post abortion haemorrhage [Recovered/Resolved]
  - Vaginal haemorrhage [None]
  - Device dislocation [None]
  - Hypomenorrhoea [None]

NARRATIVE: CASE EVENT DATE: 2017
